FAERS Safety Report 4452288-9 (Version None)
Quarter: 2004Q3

REPORT INFORMATION
  Report Type: 
  Country: None (occurrence: None)
  Receive Date: 20040917
  Receipt Date: 20040415
  Transmission Date: 20050211
  Serious: Yes (Disabling)
  Sender: FDA-Public Use
  Company Number: JP-ROCHE-364730

PATIENT
  Age: 40 Year
  Sex: Female
  Weight: 44.8 kg

DRUGS (7)
  1. XELODA [Suspect]
     Indication: BREAST CANCER
     Route: 048
     Dates: start: 20040312, end: 20040422
  2. FERROMIA [Concomitant]
     Indication: ANAEMIA
     Route: 048
     Dates: start: 20030415, end: 20040415
  3. ZYLORIC [Concomitant]
     Indication: HYPERURICAEMIA
     Route: 048
     Dates: start: 20030415, end: 20040415
  4. NOLVADEX [Concomitant]
     Indication: BREAST CANCER
     Route: 048
     Dates: start: 20030417, end: 20040422
  5. LOXONIN [Concomitant]
     Indication: PAIN
     Route: 048
     Dates: start: 20030415, end: 20040415
  6. AZULENE SULFONATE SODIUM/L-GLUTAMINE [Concomitant]
     Indication: PROPHYLAXIS
     Route: 048
     Dates: start: 20030415, end: 20040415
  7. ZOLADEX [Concomitant]
     Dates: start: 20030417, end: 20040422

REACTIONS (4)
  - CACHEXIA [None]
  - HYPERCALCAEMIA [None]
  - NAUSEA [None]
  - VOMITING [None]
